FAERS Safety Report 8980607 (Version 2)
Quarter: 2013Q1

REPORT INFORMATION
  Report Type: Spontaneous
  Country: JP (occurrence: JP)
  Receive Date: 20121221
  Receipt Date: 20130221
  Transmission Date: 20140127
  Serious: Yes (Other)
  Sender: FDA-Public Use
  Company Number: PHHY2012JP118198

PATIENT
  Age: 84 Year
  Sex: Female

DRUGS (7)
  1. RIVASTIGMIN [Suspect]
     Indication: DEMENTIA ALZHEIMER^S TYPE
     Dosage: 4.5 MG, DAILY
     Route: 062
     Dates: start: 20121117
  2. RIVASTIGMIN [Suspect]
     Dosage: 18 MG, DAILY
     Route: 062
     Dates: start: 20120217
  3. GLACTIV [Concomitant]
     Dosage: UNK UKN, UNK
     Dates: start: 20111015
  4. MICARDIS [Concomitant]
     Dosage: UNK UKN, UNK
     Dates: start: 20110118
  5. SELARA [Concomitant]
     Dosage: UNK UKN, UNK
     Dates: start: 20091015
  6. GASMOTIN [Concomitant]
     Dosage: UNK UKN, UNK
     Dates: start: 20070118
  7. MELBIN [Concomitant]
     Dosage: UNK UKN, UNK
     Dates: start: 20070118

REACTIONS (1)
  - Suicidal ideation [Recovered/Resolved]
